FAERS Safety Report 15125214 (Version 3)
Quarter: 2020Q1

REPORT INFORMATION
  Report Type: Spontaneous
  Country: US (occurrence: US)
  Receive Date: 20180710
  Receipt Date: 20200320
  Transmission Date: 20200409
  Serious: Yes (Other)
  Sender: FDA-Public Use
  Company Number: US-ORPHAN EUROPE-2051642

PATIENT
  Age: 56 Year
  Sex: Male
  Weight: 86.62 kg

DRUGS (15)
  1. CARBAGLU [Suspect]
     Active Substance: CARGLUMIC ACID
     Indication: N-ACETYLGLUTAMATE SYNTHASE DEFICIENCY
     Dates: start: 20171103
  2. CLONIDINE. [Concomitant]
     Active Substance: CLONIDINE
     Dates: start: 20170620
  3. NITROGLYCERINE [Concomitant]
     Active Substance: NITROGLYCERIN
  4. VITAMIN B12 [Concomitant]
     Active Substance: CYANOCOBALAMIN
     Dates: start: 20170531
  5. VALSARTAN. [Concomitant]
     Active Substance: VALSARTAN
  6. VICTOZA [Concomitant]
     Active Substance: LIRAGLUTIDE
  7. EZETIMIBE. [Concomitant]
     Active Substance: EZETIMIBE
  8. PRAVASTATIN. [Concomitant]
     Active Substance: PRAVASTATIN
  9. TRAZODONE [Concomitant]
     Active Substance: TRAZODONE HYDROCHLORIDE
  10. NIFEDIPINE. [Concomitant]
     Active Substance: NIFEDIPINE
  11. BUPROPION. [Concomitant]
     Active Substance: BUPROPION
     Dates: start: 20170818
  12. CLONAZEPAM. [Concomitant]
     Active Substance: CLONAZEPAM
     Dates: start: 20170531
  13. JARDIANCE [Concomitant]
     Active Substance: EMPAGLIFLOZIN
     Dates: start: 20170619
  14. GABAPENTIN. [Concomitant]
     Active Substance: GABAPENTIN
  15. METFORMIN [Concomitant]
     Active Substance: METFORMIN HYDROCHLORIDE

REACTIONS (1)
  - Red blood cell sedimentation rate increased [Unknown]
